FAERS Safety Report 11753509 (Version 1)
Quarter: 2015Q4

REPORT INFORMATION
  Report Type: Spontaneous
  Country: US (occurrence: US)
  Receive Date: 20151119
  Receipt Date: 20151119
  Transmission Date: 20160304
  Serious: No
  Sender: FDA-Public Use
  Company Number: US-BIOGENIDEC-2015BI150395

PATIENT
  Sex: Female

DRUGS (1)
  1. TYSABRI [Suspect]
     Active Substance: NATALIZUMAB
     Indication: MULTIPLE SCLEROSIS
     Route: 042

REACTIONS (12)
  - Oral disorder [Unknown]
  - Speech disorder [Unknown]
  - Mental impairment [Unknown]
  - Contusion [Unknown]
  - Hypersensitivity [Unknown]
  - Eye swelling [Unknown]
  - Swollen tongue [Unknown]
  - Temperature intolerance [Unknown]
  - Fatigue [Unknown]
  - Lymphadenopathy [Unknown]
  - Feeling hot [Unknown]
  - Depression [Unknown]
